FAERS Safety Report 11335652 (Version 1)
Quarter: 2015Q3

REPORT INFORMATION
  Report Type: Spontaneous
  Country: US (occurrence: US)
  Receive Date: 20150804
  Receipt Date: 20150804
  Transmission Date: 20151125
  Serious: No
  Sender: FDA-Public Use
  Company Number: US-GLAXOSMITHKLINE-US2015108731

PATIENT
  Sex: Female

DRUGS (6)
  1. LOVAZA [Suspect]
     Active Substance: OMEGA-3-ACID ETHYL ESTERS
     Indication: PRODUCT USED FOR UNKNOWN INDICATION
     Dosage: 1 DF, BID
     Route: 048
     Dates: start: 201411, end: 201502
  2. BUPROPION. [Concomitant]
     Active Substance: BUPROPION
  3. CLONAZEPAM. [Concomitant]
     Active Substance: CLONAZEPAM
  4. LACTULOSE. [Concomitant]
     Active Substance: LACTULOSE
  5. LISINOPRIL. [Concomitant]
     Active Substance: LISINOPRIL
  6. NORVASC [Concomitant]
     Active Substance: AMLODIPINE BESYLATE

REACTIONS (1)
  - Rash macular [Recovering/Resolving]
